FAERS Safety Report 16996340 (Version 1)
Quarter: 2019Q4

REPORT INFORMATION
  Report Type: Spontaneous
  Country: US (occurrence: US)
  Receive Date: 20191105
  Receipt Date: 20191105
  Transmission Date: 20200122
  Serious: No
  Sender: FDA-Public Use
  Company Number: US-RADIUS HEALTH INC.-2019US002668

PATIENT
  Age: 66 Year
  Sex: Female

DRUGS (1)
  1. TYMLOS [Suspect]
     Active Substance: ABALOPARATIDE
     Indication: OSTEOPOROSIS POSTMENOPAUSAL
     Dosage: 80 MCG, QD
     Dates: start: 20190626, end: 201907

REACTIONS (5)
  - Pain in extremity [Unknown]
  - Injection site urticaria [Unknown]
  - Depression [Recovering/Resolving]
  - Nausea [Unknown]
  - Product administered at inappropriate site [Unknown]
